FAERS Safety Report 9509314 (Version 2)
Quarter: 2013Q3

REPORT INFORMATION
  Report Type: Spontaneous
  Country: US (occurrence: US)
  Receive Date: 20130909
  Receipt Date: 20130909
  Transmission Date: 20140515
  Serious: No
  Sender: FDA-Public Use
  Company Number: US-BRISTOL-MYERS SQUIBB COMPANY-17337890

PATIENT
  Age: 49 Year
  Sex: Female

DRUGS (4)
  1. ABILIFY TABS 30 MG [Suspect]
     Indication: BIPOLAR DISORDER
  2. LAMICTAL [Concomitant]
  3. RESTORIL [Concomitant]
  4. TOPAMAX [Concomitant]

REACTIONS (4)
  - Malaise [Unknown]
  - Nausea [Unknown]
  - Fatigue [Unknown]
  - Headache [Unknown]
